FAERS Safety Report 20483012 (Version 1)
Quarter: 2022Q1

REPORT INFORMATION
  Report Type: Spontaneous
  Country: US (occurrence: US)
  Receive Date: 20220217
  Receipt Date: 20220217
  Transmission Date: 20220423
  Serious: No
  Sender: FDA-Public Use
  Company Number: US-HORIZON THERAPEUTICS-HZN-2021-009151

PATIENT
  Sex: Female

DRUGS (1)
  1. PENNSAID [Suspect]
     Active Substance: DICLOFENAC SODIUM
     Indication: Osteoarthritis
     Dosage: 2% PUMPS; 40 MG, BID (APPLY 2 PUMPS 2 TIMES A DAY)
     Route: 065

REACTIONS (3)
  - Carpal tunnel syndrome [Unknown]
  - Tremor [Unknown]
  - Off label use [Unknown]
